FAERS Safety Report 15044533 (Version 1)
Quarter: 2018Q2

REPORT INFORMATION
  Report Type: Other
  Country: US (occurrence: DE)
  Receive Date: 20180621
  Receipt Date: 20180621
  Transmission Date: 20180711
  Serious: Yes (Death)
  Sender: FDA-Public Use
  Company Number: DE-BRECKENRIDGE PHARMACEUTICAL, INC.-2049782

PATIENT
  Age: 74 Year
  Sex: Male

DRUGS (1)
  1. BENDAMUSTINE [Suspect]
     Active Substance: BENDAMUSTINE

REACTIONS (1)
  - Adenocarcinoma [Fatal]
